FAERS Safety Report 20572016 (Version 11)
Quarter: 2024Q1

REPORT INFORMATION
  Report Type: Spontaneous
  Country: US (occurrence: US)
  Receive Date: 20220309
  Receipt Date: 20240215
  Transmission Date: 20240409
  Serious: Yes (Hospitalization, Disabling, Other)
  Sender: FDA-Public Use
  Company Number: US-ORGANON-O2203USA000737

PATIENT
  Sex: Female

DRUGS (15)
  1. SINGULAIR [Suspect]
     Active Substance: MONTELUKAST SODIUM
     Dosage: UNK
     Route: 048
     Dates: start: 1998
  2. SINGULAIR [Suspect]
     Active Substance: MONTELUKAST SODIUM
     Indication: Asthma
     Dosage: 10 MILLIGRAM, DAILY
     Route: 048
  3. SINGULAIR [Suspect]
     Active Substance: MONTELUKAST SODIUM
     Dosage: 1 TABLET, HS
     Route: 048
     Dates: end: 2013
  4. SINGULAIR [Suspect]
     Active Substance: MONTELUKAST SODIUM
     Dosage: TAKE 1 TABLET BY MOUTH EVERY DAYUNK
     Route: 048
  5. ADVAIR HFA [Suspect]
     Active Substance: FLUTICASONE PROPIONATE\SALMETEROL XINAFOATE
     Indication: Asthma
     Dosage: UNK
  6. PREDNISONE [Concomitant]
     Active Substance: PREDNISONE
     Dosage: 1 TABLET ORALLY 4 TABLETS FOR 4 DAYS,
     Route: 048
  7. PREDNISONE [Concomitant]
     Active Substance: PREDNISONE
     Dosage: 3 TABLETS FOR 4 DAYS
  8. PREDNISONE [Concomitant]
     Active Substance: PREDNISONE
     Dosage: 2 TABLETS FOR 4 DAYS
  9. PREDNISONE [Concomitant]
     Active Substance: PREDNISONE
     Dosage: 1 TABLET FOR 4 DAYS
  10. CLARITHROMYCIN [Concomitant]
     Active Substance: CLARITHROMYCIN
     Dosage: 1 TABLET ORALLY ONCE A DAY
     Route: 048
  11. SYMBICORT [Concomitant]
     Active Substance: BUDESONIDE\FORMOTEROL FUMARATE DIHYDRATE
     Dosage: 2 PUFFS INHALATION TWICE A DAY
  12. ALBUTEROL SULFATE [Concomitant]
     Active Substance: ALBUTEROL SULFATE
     Dosage: 2 PUFFS AS NEEDED INHALATION EVERY 6 HRS
  13. ALBUTEROL SULFATE [Concomitant]
     Active Substance: ALBUTEROL SULFATE
     Dosage: 5 ML INHALATION THREE TIMES A DAY
  14. INCRUSE ELLIPTA [Concomitant]
     Active Substance: UMECLIDINIUM BROMIDE
     Dosage: 1 PUFF INHALATION ONCE A DAY
  15. ALBUTEROL\IPRATROPIUM [Concomitant]
     Active Substance: ALBUTEROL\IPRATROPIUM
     Dosage: 0.5-2.5 (3) MG/3ML SOLUTION 3 ML AS NEEDED INHALATION EVERY 6 HRS

REACTIONS (25)
  - Neuropsychological symptoms [Not Recovered/Not Resolved]
  - Panic attack [Unknown]
  - Major depression [Recovered/Resolved]
  - Migraine [Recovered/Resolved]
  - Intentional self-injury [Unknown]
  - Generalised anxiety disorder [Not Recovered/Not Resolved]
  - Suicidal behaviour [Unknown]
  - Suicidal ideation [Recovered/Resolved]
  - Suicidal ideation [Unknown]
  - Mental disorder [Not Recovered/Not Resolved]
  - Social anxiety disorder [Not Recovered/Not Resolved]
  - Social avoidant behaviour [Unknown]
  - Feeling abnormal [Unknown]
  - Neuralgia [Unknown]
  - Migraine [Unknown]
  - Anxiety [Recovering/Resolving]
  - Asthenia [Not Recovered/Not Resolved]
  - Abdominal pain [Not Recovered/Not Resolved]
  - Depression [Recovering/Resolving]
  - Asthma [Unknown]
  - Drug ineffective [Unknown]
  - Drug intolerance [Unknown]
  - Migraine [Unknown]
  - Wheezing [Unknown]
  - Dyspnoea [Unknown]

NARRATIVE: CASE EVENT DATE: 20070101
